FAERS Safety Report 8124394-9 (Version None)
Quarter: 2012Q1

REPORT INFORMATION
  Report Type: 
  Country: None (occurrence: None)
  Receive Date: 20120209
  Receipt Date: 20120203
  Transmission Date: 20120608
  Serious: Yes (Other)
  Sender: FDA-Public Use
  Company Number: US-BAYER-2012-011825

PATIENT
  Age: 82 Year
  Sex: Male

DRUGS (2)
  1. DOXAZOSIN [Concomitant]
  2. ALEVE (CAPLET) [Suspect]
     Dosage: 2-3 UNITS BID, BOTTE COUNT 50S
     Route: 048
     Dates: start: 20120101, end: 20120201

REACTIONS (4)
  - DYSURIA [None]
  - BLOOD URINE PRESENT [None]
  - HAEMORRHAGE URINARY TRACT [None]
  - GASTRIC HAEMORRHAGE [None]
